FAERS Safety Report 14936978 (Version 2)
Quarter: 2018Q3

REPORT INFORMATION
  Report Type: Report from Study
  Country: US (occurrence: US)
  Receive Date: 20180525
  Receipt Date: 20180706
  Transmission Date: 20181010
  Serious: Yes (Hospitalization, Other)
  Sender: FDA-Public Use
  Company Number: US-AMGEN-USASL2018070690

PATIENT
  Sex: Female

DRUGS (2)
  1. NEULASTA [Suspect]
     Active Substance: PEGFILGRASTIM
     Indication: PRODUCT USED FOR UNKNOWN INDICATION
     Dosage: UNK, AFTER CHEMO
     Route: 065
  2. NEULASTA [Suspect]
     Active Substance: PEGFILGRASTIM
     Dosage: 4 MG, UNK (AFTER THIRD AND FOURTH CHEMOTHERAPY)
     Route: 065

REACTIONS (13)
  - Jugular vein thrombosis [Unknown]
  - Fatigue [Unknown]
  - Alanine aminotransferase increased [Unknown]
  - Pain [Unknown]
  - Aspartate aminotransferase increased [Unknown]
  - White blood cell count decreased [Unknown]
  - Oral candidiasis [Unknown]
  - White blood cell count increased [Unknown]
  - Mental impairment [Unknown]
  - Malaise [Unknown]
  - Mobility decreased [Unknown]
  - Feeling abnormal [Unknown]
  - Arthralgia [Unknown]
